FAERS Safety Report 11578936 (Version 3)
Quarter: 2015Q4

REPORT INFORMATION
  Report Type: Report from Study
  Country: US (occurrence: US)
  Receive Date: 20150930
  Receipt Date: 20151009
  Transmission Date: 20160304
  Serious: Yes (Other)
  Sender: FDA-Public Use
  Company Number: US-PFIZER INC-2014124316

PATIENT
  Age: 52 Year
  Sex: Female
  Weight: 72 kg

DRUGS (18)
  1. ENBREL [Suspect]
     Active Substance: ETANERCEPT
     Indication: SJOGREN^S SYNDROME
     Dosage: UNK
  2. ENBREL [Suspect]
     Active Substance: ETANERCEPT
     Indication: RHEUMATOID ARTHRITIS
     Dosage: 50 MG, WEEKLY
     Route: 058
     Dates: start: 201405
  3. ENBREL [Suspect]
     Active Substance: ETANERCEPT
     Dosage: UNK
  4. LORAZEPAM. [Concomitant]
     Active Substance: LORAZEPAM
     Indication: INSOMNIA
     Dosage: 1 MG, AS NECESSARY
  5. KLONOPIN [Concomitant]
     Active Substance: CLONAZEPAM
     Indication: INSOMNIA
     Dosage: UNK UNK, 3X/DAY (S NEEDED ONE BY MOUTH THREE TIMES A DAY)
     Route: 048
  6. CYMBALTA [Concomitant]
     Active Substance: DULOXETINE HYDROCHLORIDE
     Indication: DEPRESSION
     Dosage: UNK
  7. CEVIMELINE. [Concomitant]
     Active Substance: CEVIMELINE
     Dosage: UNK
  8. ENBREL [Suspect]
     Active Substance: ETANERCEPT
     Dosage: UNK
  9. AUGMENTIN [Concomitant]
     Active Substance: AMOXICILLIN\CLAVULANATE POTASSIUM
     Dosage: UNK
  10. WELLBUTRIN [Concomitant]
     Active Substance: BUPROPION HYDROCHLORIDE
     Indication: INSOMNIA
     Dosage: 150 MG, BID
  11. LEVOTHYROXINE. [Concomitant]
     Active Substance: LEVOTHYROXINE
     Indication: HYPOTHYROIDISM
     Dosage: UNK
  12. HYDROXYCHLOROQUINE [Concomitant]
     Active Substance: HYDROXYCHLOROQUINE
     Indication: RHEUMATOID ARTHRITIS
     Dosage: UNK
  13. TRAMADOL. [Concomitant]
     Active Substance: TRAMADOL
     Indication: RHEUMATOID ARTHRITIS
     Dosage: UNK
  14. ASA [Suspect]
     Active Substance: ASPIRIN
     Dosage: 81 MG, 1X/DAY
  15. CLINDAMYCIN PHOSPHATE. [Concomitant]
     Active Substance: CLINDAMYCIN PHOSPHATE
     Dosage: UNK
  16. DOXYCYCLINE HYCLATE. [Suspect]
     Active Substance: DOXYCYCLINE HYCLATE
     Indication: STAPHYLOCOCCAL INFECTION
     Dosage: 100 MG, BID
  17. PROBIOTIC /06395501/ [Concomitant]
     Active Substance: BIFIDOBACTERIUM ANIMALIS SUBSP. LACTIS
     Dosage: UNK
  18. ATORVASTATIN [Concomitant]
     Active Substance: ATORVASTATIN
     Indication: LIPIDS
     Dosage: UNK

REACTIONS (30)
  - Injection site haemorrhage [Unknown]
  - Injection site bruising [Unknown]
  - Sleep disorder [Unknown]
  - Urinary tract infection [Unknown]
  - Altered visual depth perception [Unknown]
  - Lethargy [Not Recovered/Not Resolved]
  - Dysphonia [Unknown]
  - Dizziness [Unknown]
  - Haemorrhage urinary tract [Not Recovered/Not Resolved]
  - Diplopia [Not Recovered/Not Resolved]
  - Chills [Unknown]
  - Staphylococcal skin infection [Unknown]
  - Hyperthyroidism [Unknown]
  - Malaise [Not Recovered/Not Resolved]
  - Pyrexia [Unknown]
  - Injection site extravasation [Unknown]
  - Localised infection [Unknown]
  - Increased tendency to bruise [Unknown]
  - Herpes zoster [Unknown]
  - Bacterial infection [Unknown]
  - Hypotension [Not Recovered/Not Resolved]
  - Fatigue [Unknown]
  - Abdominal pain upper [Not Recovered/Not Resolved]
  - Rash [Not Recovered/Not Resolved]
  - Off label use [Unknown]
  - Skin ulcer [Unknown]
  - Pruritus [Unknown]
  - Nausea [Not Recovered/Not Resolved]
  - Somnolence [Not Recovered/Not Resolved]
  - Insomnia [Not Recovered/Not Resolved]

NARRATIVE: CASE EVENT DATE: 201405
